FAERS Safety Report 18484073 (Version 2)
Quarter: 2020Q4

REPORT INFORMATION
  Report Type: Spontaneous
  Country: US (occurrence: US)
  Receive Date: 20201110
  Receipt Date: 20201112
  Transmission Date: 20210114
  Serious: Yes (Other)
  Sender: FDA-Public Use
  Company Number: US-ROCHE-2452977

PATIENT
  Age: 58 Year
  Sex: Female
  Weight: 65.83 kg

DRUGS (15)
  1. TRADJENTA [Concomitant]
     Active Substance: LINAGLIPTIN
     Indication: DIABETES MELLITUS
     Dosage: ONGOING: YES
     Route: 048
     Dates: start: 201901
  2. LEUCOVORIN. [Concomitant]
     Active Substance: LEUCOVORIN
     Dosage: ONGOING: YES
     Route: 048
     Dates: start: 2005
  3. AIRBORNE [Concomitant]
     Active Substance: HERBALS\MINERALS\VITAMINS
     Dosage: 4 TABLETS DAILY, ONGOING: YES
     Route: 048
  4. REPATHA [Concomitant]
     Active Substance: EVOLOCUMAB
     Indication: CORONARY ARTERY DISEASE
     Dosage: ONGOING: YES
     Route: 058
     Dates: start: 2018
  5. PRILOSEC [Concomitant]
     Active Substance: OMEPRAZOLE MAGNESIUM
     Indication: HIATUS HERNIA
     Dosage: ONGOING: YES
     Route: 048
  6. PEPCID [Concomitant]
     Active Substance: FAMOTIDINE
     Indication: HIATUS HERNIA
     Dosage: ONGOING: YES
     Route: 048
     Dates: start: 20201013
  7. NEURONTIN [Concomitant]
     Active Substance: GABAPENTIN
     Indication: NEUROPATHY PERIPHERAL
     Dosage: ONGOING: YES
     Route: 048
  8. JARDIANCE [Concomitant]
     Active Substance: EMPAGLIFLOZIN
     Indication: DIABETES MELLITUS
     Dosage: ONGOING: YES
     Route: 048
     Dates: start: 201901
  9. LIPITOR [Suspect]
     Active Substance: ATORVASTATIN CALCIUM
     Indication: HYPERLIPIDAEMIA
     Dosage: ONGOING: YES
     Route: 048
  10. PEPCID [Concomitant]
     Active Substance: FAMOTIDINE
     Indication: GASTROOESOPHAGEAL REFLUX DISEASE
  11. CRESTOR [Concomitant]
     Active Substance: ROSUVASTATIN CALCIUM
     Dosage: ONGOING: NO
  12. METHOTREXATE. [Concomitant]
     Active Substance: METHOTREXATE
     Indication: RHEUMATOID ARTHRITIS
     Dosage: 5 TABLETS (2.5 MG) ONCE WEEKLY, ONGOING: YES
     Route: 048
  13. RITUXAN [Suspect]
     Active Substance: RITUXIMAB
     Indication: RHEUMATOID ARTHRITIS
     Dosage: ONGOING: YES
     Route: 042
  14. BABY ASPIRIN [Concomitant]
     Active Substance: ASPIRIN
     Indication: CORONARY ARTERY DISEASE
     Dosage: ONGOING: YES
     Dates: start: 2015
  15. PRILOSEC [Concomitant]
     Active Substance: OMEPRAZOLE MAGNESIUM
     Indication: GASTROOESOPHAGEAL REFLUX DISEASE
     Dosage: ONGOING: NO
     Route: 048

REACTIONS (10)
  - Drug ineffective [Unknown]
  - Movement disorder [Unknown]
  - Pneumonia [Unknown]
  - Arteriosclerosis [Unknown]
  - Anosmia [Recovering/Resolving]
  - Cough [Recovering/Resolving]
  - Ageusia [Recovering/Resolving]
  - Rhinorrhoea [Unknown]
  - Condition aggravated [Unknown]
  - Muscle spasms [Unknown]

NARRATIVE: CASE EVENT DATE: 201603
